FAERS Safety Report 9981267 (Version 1)
Quarter: 2014Q1

REPORT INFORMATION
  Report Type: Spontaneous
  Country: US (occurrence: None)
  Receive Date: 20140306
  Receipt Date: 20140306
  Transmission Date: 20141002
  Serious: No
  Sender: FDA-Public Use
  Company Number: None

PATIENT
  Age: 42 Year
  Sex: Female
  Weight: 79.38 kg

DRUGS (1)
  1. SCOPOLAMINE [Suspect]
     Indication: MOTION SICKNESS
     Dosage: 1 PATCH TOPICALLY ONCE DAILY APPLIED TO A SURFACE, USALLY THE SKIN
     Route: 061
     Dates: start: 20140216, end: 20140216

REACTIONS (6)
  - Dry mouth [None]
  - Oral discomfort [None]
  - Aphonia [None]
  - Vision blurred [None]
  - Application site burn [None]
  - Somnolence [None]
